FAERS Safety Report 5148346-6 (Version None)
Quarter: 2006Q4

REPORT INFORMATION
  Report Type: 
  Country: None (occurrence: None)
  Receive Date: 20061107
  Receipt Date: 20061024
  Transmission Date: 20070319
  Serious: Yes (Life-Threatening, Hospitalization)
  Sender: FDA-Public Use
  Company Number: T200601172

PATIENT
  Sex: Male

DRUGS (1)
  1. OPTIRAY 160 [Suspect]
     Indication: COMPUTERISED TOMOGRAM
     Dosage: 75 ML, SINGLE, INTRAVENOUS
     Route: 042
     Dates: start: 20061011, end: 20061011

REACTIONS (3)
  - CONTRAST MEDIA REACTION [None]
  - PROCEDURAL COMPLICATION [None]
  - SHOCK [None]
